FAERS Safety Report 6987761-2 (Version None)
Quarter: 2010Q3

REPORT INFORMATION
  Report Type: 
  Country: None (occurrence: None)
  Receive Date: 20100916
  Receipt Date: 20100908
  Transmission Date: 20110219
  Serious: Yes (Other)
  Sender: FDA-Public Use
  Company Number: PL-ASTRAZENECA-2010SE42188

PATIENT
  Age: 409 Day
  Sex: Female

DRUGS (1)
  1. EMLA PLASTER [Suspect]
     Indication: PAIN PROPHYLAXIS
     Dosage: LIDOCAINE+PRILOCAINE 25 MG+25 MG/PATCH,  3 PATCHES
     Route: 061
     Dates: start: 20100827, end: 20100827

REACTIONS (2)
  - HYPOTONIA [None]
  - LOSS OF CONSCIOUSNESS [None]
